FAERS Safety Report 20616843 (Version 1)
Quarter: 2022Q1

REPORT INFORMATION
  Report Type: Spontaneous
  Country: US (occurrence: US)
  Receive Date: 20220321
  Receipt Date: 20220321
  Transmission Date: 20220423
  Serious: Yes (Other)
  Sender: FDA-Public Use
  Company Number: US-GW PHARMA-202203USGW01339

PATIENT
  Age: 17 Year
  Sex: Male

DRUGS (2)
  1. EPIDIOLEX [Suspect]
     Active Substance: CANNABIDIOL
     Indication: Epilepsy
     Dosage: 1750 MILLIGRAM, QD (750 MG IN THE MORNING AND 1000 MG IN THE BEDTIME)
     Route: 048
     Dates: start: 202001, end: 20201221
  2. EPIDIOLEX [Suspect]
     Active Substance: CANNABIDIOL
     Dosage: 1750 MILLIGRAM, QD (750 MG IN THE MORNING AND 1000 MG IN THE BEDTIME)
     Route: 048
     Dates: start: 20201222

REACTIONS (2)
  - Seizure [Recovered/Resolved]
  - Product use in unapproved indication [Unknown]

NARRATIVE: CASE EVENT DATE: 20220303
